FAERS Safety Report 20783728 (Version 2)
Quarter: 2022Q2

REPORT INFORMATION
  Report Type: Other
  Country: KR (occurrence: None)
  Receive Date: 20220504
  Receipt Date: 20220509
  Transmission Date: 20220721
  Serious: Yes (Hospitalization)
  Sender: FDA-Public Use
  Company Number: KR-ROCHE-3010288

PATIENT
  Age: 67 Year
  Sex: Male
  Weight: 53.4 kg

DRUGS (19)
  1. ATEZOLIZUMAB [Suspect]
     Active Substance: ATEZOLIZUMAB
     Indication: Hepatocellular carcinoma
     Dosage: FURTHER DOSE ON 11/JAN/2022
     Route: 041
     Dates: start: 20211221
  2. ATEZOLIZUMAB [Suspect]
     Active Substance: ATEZOLIZUMAB
     Dosage: FURTHER DOSE ON 11/JAN/2022
     Route: 041
     Dates: start: 20220111
  3. ATEZOLIZUMAB [Suspect]
     Active Substance: ATEZOLIZUMAB
     Dosage: FURTHER DOSE ON 11/JAN/2022
     Route: 041
     Dates: start: 20220204
  4. ATEZOLIZUMAB [Suspect]
     Active Substance: ATEZOLIZUMAB
     Route: 041
     Dates: start: 20220225
  5. BEVACIZUMAB [Suspect]
     Active Substance: BEVACIZUMAB
     Indication: Hepatocellular carcinoma
     Dosage: FURTHER DOSE ON 11/JAN/2022
     Route: 042
     Dates: start: 20211221
  6. BEVACIZUMAB [Suspect]
     Active Substance: BEVACIZUMAB
     Dosage: FURTHER DOSE ON 11/JAN/2022
     Route: 042
     Dates: start: 20220111
  7. BEVACIZUMAB [Suspect]
     Active Substance: BEVACIZUMAB
     Dosage: FURTHER DOSE ON 11/JAN/2022
     Route: 042
     Dates: start: 20220204
  8. BEVACIZUMAB [Suspect]
     Active Substance: BEVACIZUMAB
     Route: 042
     Dates: start: 20220225
  9. GANAFLUX [Concomitant]
     Indication: Gastrooesophageal reflux disease
     Dosage: 20/1100M
  10. AMOSARTAN [Concomitant]
     Indication: Hypertension
     Dates: start: 2003
  11. AMILO (SOUTH KOREA) [Concomitant]
     Indication: Ascites
  12. AMINO ACIDS, SOURCE UNSPECIFIED [Concomitant]
     Active Substance: AMINO ACIDS, SOURCE UNSPECIFIED
     Indication: Hypoalbuminaemia
  13. ENPED [Concomitant]
     Indication: Hepatitis B
  14. GANAFLUX [Concomitant]
     Indication: Gastrooesophageal reflux disease
     Dosage: 20/1100MG
  15. AMILORIDE [Concomitant]
     Active Substance: AMILORIDE
  16. MEGACE F [Concomitant]
     Indication: Decreased appetite
     Dates: start: 20220111
  17. GODEX (SOUTH KOREA) [Concomitant]
     Dates: start: 20220111
  18. BARACLUDE [Concomitant]
     Active Substance: ENTECAVIR
     Indication: Hepatitis B
     Dates: start: 20220111
  19. TWYNSTA [Concomitant]
     Active Substance: AMLODIPINE BESYLATE\TELMISARTAN
     Indication: Hypertension
     Dosage: 40/5MG
     Dates: start: 20220203

REACTIONS (7)
  - Varices oesophageal [Recovered/Resolved]
  - Hypoalbuminaemia [Recovering/Resolving]
  - Decreased appetite [Recovering/Resolving]
  - Pyrexia [Recovered/Resolved]
  - Diarrhoea [Recovering/Resolving]
  - Pruritus [Recovering/Resolving]
  - Blood bilirubin increased [Recovering/Resolving]

NARRATIVE: CASE EVENT DATE: 20220110
